FAERS Safety Report 24170710 (Version 1)
Quarter: 2024Q3

REPORT INFORMATION
  Report Type: Spontaneous
  Country: US (occurrence: None)
  Receive Date: 20240803
  Receipt Date: 20240803
  Transmission Date: 20241017
  Serious: Yes (Other)
  Sender: Public
  Company Number: None

PATIENT
  Sex: Male

DRUGS (7)
  1. ENBREL [Suspect]
     Active Substance: BENZYL ALCOHOL\ETANERCEPT
     Indication: Ankylosing spondylitis
     Dates: start: 20210211
  2. ENBREL SRCLK [Concomitant]
  3. FAMOTIDINE [Concomitant]
     Active Substance: FAMOTIDINE
  4. FLOMAX [Concomitant]
     Active Substance: TAMSULOSIN HYDROCHLORIDE
  5. HYDROCODONE POW BITARTRA [Concomitant]
  6. TRAMADOL HCL POW [Concomitant]
  7. VITAMIN D CAP [Concomitant]
     Dosage: OTHER QUANTITY : 50000UNIT ;?

REACTIONS (2)
  - Tympanoplasty [None]
  - Therapy interrupted [None]
